FAERS Safety Report 10573493 (Version 2)
Quarter: 2014Q4

REPORT INFORMATION
  Report Type: Spontaneous
  Country: US (occurrence: JP)
  Receive Date: 20141110
  Receipt Date: 20141110
  Transmission Date: 20150529
  Serious: Yes (Hospitalization, Other)
  Sender: FDA-Public Use
  Company Number: JP-CELGENE-087-21880-14043941

PATIENT
  Age: 65 Year
  Sex: Male
  Weight: 59.8 kg

DRUGS (20)
  1. REVLIMID [Suspect]
     Active Substance: LENALIDOMIDE
     Indication: PLASMA CELL MYELOMA
     Route: 048
     Dates: start: 20140417, end: 20140423
  2. REVLIMID [Suspect]
     Active Substance: LENALIDOMIDE
     Route: 048
     Dates: start: 20140424
  3. CONCENTRATED HUMAN RED BLOOD CELLS [Concomitant]
     Route: 041
     Dates: start: 20140425, end: 20140425
  4. LYRICA [Concomitant]
     Active Substance: PREGABALIN
     Indication: POST HERPETIC NEURALGIA
     Route: 048
     Dates: start: 20140417, end: 20140613
  5. NOVAMIN [Concomitant]
     Active Substance: PROCHLORPERAZINE MALEATE
     Route: 048
     Dates: start: 20140425, end: 20140517
  6. LENADEX [Suspect]
     Active Substance: DEXAMETHASONE ACETATE
     Indication: PLASMA CELL MYELOMA RECURRENT
     Route: 065
     Dates: start: 20140220
  7. PROTECADIN OD [Concomitant]
     Active Substance: LAFUTIDINE
     Indication: PROPHYLAXIS
     Route: 048
     Dates: start: 20140220, end: 20140629
  8. CO-DIO [Concomitant]
     Indication: HYPERTENSION
     Route: 048
     Dates: start: 20140403, end: 20140613
  9. CONCENTRATED HUMAN RED BLOOD CELLS [Concomitant]
     Route: 041
     Dates: start: 20140606, end: 20140606
  10. NASONEX [Concomitant]
     Active Substance: MOMETASONE FUROATE
     Indication: RHINITIS ALLERGIC
     Route: 065
     Dates: start: 20140319
  11. CONCENTRATED HUMAN RED BLOOD CELLS [Concomitant]
     Route: 041
     Dates: start: 20140512, end: 20140512
  12. MUCOSTA [Concomitant]
     Active Substance: REBAMIPIDE
     Indication: PROPHYLAXIS
     Route: 048
     Dates: start: 20140220, end: 20140629
  13. LENDORMIN D [Concomitant]
     Active Substance: BROTIZOLAM
     Indication: INSOMNIA
     Route: 048
     Dates: start: 20140224, end: 20140629
  14. METHYCOBAL [Concomitant]
     Active Substance: METHYLCOBALAMIN
     Indication: POST HERPETIC NEURALGIA
     Route: 048
     Dates: start: 20140402, end: 20140613
  15. ADONA [Concomitant]
     Active Substance: CARBAZOCHROME SODIUM SULFONATE
     Indication: EPISTAXIS
     Route: 048
     Dates: start: 20140220, end: 20140629
  16. LOXONIN [Concomitant]
     Active Substance: LOXOPROFEN SODIUM
     Indication: PAIN
     Route: 048
     Dates: start: 20140226, end: 20140629
  17. ZOVIRAX [Concomitant]
     Active Substance: ACYCLOVIR
     Route: 048
     Dates: start: 20140417, end: 20140629
  18. LENADEX [Suspect]
     Active Substance: DEXAMETHASONE ACETATE
     Route: 048
     Dates: start: 20140417
  19. CONCENTRATED HUMAN RED BLOOD CELLS [Concomitant]
     Indication: ANAEMIA
     Route: 041
     Dates: start: 20140414, end: 20140414
  20. CELECOX [Concomitant]
     Active Substance: CELECOXIB
     Indication: PRODUCT USED FOR UNKNOWN INDICATION
     Route: 048
     Dates: start: 20140613, end: 20140629

REACTIONS (11)
  - Musculoskeletal stiffness [Unknown]
  - Productive cough [Unknown]
  - Sleep disorder [Unknown]
  - Constipation [Unknown]
  - Hypertension [Unknown]
  - Post herpetic neuralgia [Recovering/Resolving]
  - Hypersensitivity [Unknown]
  - Pruritus [Unknown]
  - Infection [Unknown]
  - Nasopharyngitis [Unknown]
  - Hypocalcaemia [Unknown]

NARRATIVE: CASE EVENT DATE: 2014
